FAERS Safety Report 8551790-8 (Version None)
Quarter: 2012Q3

REPORT INFORMATION
  Report Type: 
  Country: None (occurrence: None)
  Receive Date: 20120730
  Receipt Date: 20120723
  Transmission Date: 20120928
  Serious: Yes (Death, Hospitalization)
  Sender: FDA-Public Use
  Company Number: KR-PFIZER INC-2012152414

PATIENT
  Age: 50 Year
  Sex: Female
  Weight: 58.3 kg

DRUGS (4)
  1. AROMASIN [Suspect]
     Indication: BREAST CANCER
     Dosage: 25 MG, 1X/DAY
     Dates: start: 20120608, end: 20120622
  2. AROMASIN [Suspect]
     Dosage: 25 MG, 1X/DAY
     Dates: start: 20120625, end: 20120713
  3. RANITIDINE [Concomitant]
     Indication: ANTACID THERAPY
     Dosage: UNK
     Route: 048
     Dates: start: 20120608, end: 20120621
  4. ALPRAZOLAM [Concomitant]
     Indication: INSOMNIA
     Dosage: UNK
     Route: 048
     Dates: start: 20120608, end: 20120621

REACTIONS (2)
  - HEPATIC FAILURE [None]
  - ASTHENIA [None]
